FAERS Safety Report 24694135 (Version 1)
Quarter: 2024Q4

REPORT INFORMATION
  Report Type: Spontaneous
  Country: FR (occurrence: FR)
  Receive Date: 20241204
  Receipt Date: 20241204
  Transmission Date: 20250114
  Serious: Yes (Hospitalization)
  Sender: CHEPLAPHARM
  Company Number: None

PATIENT
  Age: 63 Year
  Sex: Male
  Weight: 86 kg

DRUGS (12)
  1. ETOPOSIDE PHOSPHATE [Suspect]
     Active Substance: ETOPOSIDE PHOSPHATE
     Indication: Adrenocortical carcinoma
     Dosage: 300 MG/M2 I.E. TOTAL DOSE 225 MG D1J2J3?DAILY DOSE: 225 MILLIGRAM
     Route: 042
     Dates: start: 20241108, end: 20241110
  2. CARBOPLATIN [Concomitant]
     Active Substance: CARBOPLATIN
     Dosage: AUC5 440 MG D1
  3. SOLU-MEDROL [Concomitant]
     Active Substance: METHYLPREDNISOLONE SODIUM SUCCINATE
  4. ONDANSETRON [Concomitant]
     Active Substance: ONDANSETRON
  5. EMEND [Concomitant]
     Active Substance: APREPITANT
  6. PRIMPERAN [Concomitant]
     Active Substance: METOCLOPRAMIDE HYDROCHLORIDE
  7. FILGRASTIM [Concomitant]
     Active Substance: FILGRASTIM
     Dosage: 48 MUI 48H AFTER THE END OF CHEMOTHERAPY
  8. LYSODREN [Concomitant]
     Active Substance: MITOTANE
  9. HYDROCORTISONE [Concomitant]
     Active Substance: HYDROCORTISONE
  10. AMLODIPINE BESYLATE [Concomitant]
     Active Substance: AMLODIPINE BESYLATE
  11. KARDEGIC [Concomitant]
     Active Substance: ASPIRIN DL-LYSINE
  12. ATARAX [Concomitant]
     Active Substance: HYDROXYZINE HYDROCHLORIDE

REACTIONS (1)
  - Acute respiratory distress syndrome [Recovered/Resolved]

NARRATIVE: CASE EVENT DATE: 20241108
